FAERS Safety Report 4700095-1 (Version None)
Quarter: 2005Q1

REPORT INFORMATION
  Report Type: 
  Country: None (occurrence: None)
  Receive Date: 20050123
  Receipt Date: 20050123
  Transmission Date: 20050727
  Serious: Yes (Hospitalization)
  Sender: FDA-Public Use
  Company Number: None

PATIENT
  Sex: Male
  Weight: 85 kg

DRUGS (8)
  1. RAPAMYCIN [Suspect]
     Indication: OESOPHAGEAL CANCER METASTATIC
     Dosage: 1 MG PO Q WEEK
     Route: 048
     Dates: start: 20050209, end: 20050420
  2. KETOCONAZOLE [Suspect]
     Dosage: 200 MG PO BID X1, QD X 3
     Route: 048
     Dates: start: 20050215, end: 20050421
  3. OXYCONTIN [Concomitant]
  4. TYLENOL W/ CODEINE NO. 3 [Concomitant]
  5. COLACE [Concomitant]
  6. TESSALON [Concomitant]
  7. THORAZINE [Concomitant]
  8. SENNOKOT [Concomitant]

REACTIONS (3)
  - DISEASE PROGRESSION [None]
  - PERICARDIAL EFFUSION [None]
  - PLEURAL EFFUSION [None]
